FAERS Safety Report 7051510-2 (Version None)
Quarter: 2010Q4

REPORT INFORMATION
  Report Type: 
  Country: None (occurrence: None)
  Receive Date: 20101014
  Receipt Date: 20101006
  Transmission Date: 20110411
  Serious: Yes (Other)
  Sender: FDA-Public Use
  Company Number: 019974

PATIENT
  Age: 46 Year
  Sex: Female

DRUGS (1)
  1. VIMPAT [Suspect]
     Indication: OFF LABEL USE
     Dosage: (150 MG BID ORAL), (DOSE REDUCED 50MG EVERY DAY UNTILL THE DISCONTINUATION. ORAL)
     Route: 048
     Dates: start: 20101004

REACTIONS (9)
  - ANXIETY [None]
  - ATRIAL FIBRILLATION [None]
  - ATRIOVENTRICULAR BLOCK SECOND DEGREE [None]
  - CARDIAC ARREST [None]
  - CONDITION AGGRAVATED [None]
  - IRRITABILITY [None]
  - MALAISE [None]
  - MENTAL DISORDER [None]
  - NERVOUSNESS [None]
